FAERS Safety Report 24649769 (Version 1)
Quarter: 2024Q4

REPORT INFORMATION
  Report Type: Spontaneous
  Country: CN (occurrence: CN)
  Receive Date: 20241121
  Receipt Date: 20241121
  Transmission Date: 20250114
  Serious: Yes (Other)
  Sender: STRIDES
  Company Number: CN-STRIDES ARCOLAB LIMITED-2024SP015096

PATIENT
  Age: 38 Year
  Sex: Male

DRUGS (1)
  1. LEVETIRACETAM [Suspect]
     Active Substance: LEVETIRACETAM
     Indication: Epilepsy
     Dosage: UNK
     Route: 048

REACTIONS (5)
  - Sleep disorder [Recovered/Resolved]
  - Hallucination [Recovered/Resolved]
  - Psychiatric symptom [Recovered/Resolved]
  - Drug ineffective [Unknown]
  - Disease progression [Recovered/Resolved]
